FAERS Safety Report 17629178 (Version 1)
Quarter: 2020Q2

REPORT INFORMATION
  Report Type: Spontaneous
  Country: FI (occurrence: FI)
  Receive Date: 20200406
  Receipt Date: 20200406
  Transmission Date: 20200713
  Serious: Yes (Death)
  Sender: FDA-Public Use
  Company Number: FI-TEVA-2009R0403266

PATIENT
  Age: 54 Year
  Sex: Female

DRUGS (5)
  1. LEVOMEPROMAZINE [Concomitant]
     Active Substance: LEVOMEPROMAZINE
  2. CLOZAPINE. [Concomitant]
     Active Substance: CLOZAPINE
  3. LORAZEPAM. [Concomitant]
     Active Substance: LORAZEPAM
  4. DEXTROMETHORPHAN [Interacting]
     Active Substance: DEXTROMETHORPHAN
     Route: 065
  5. FLUOXETINE [Suspect]
     Active Substance: FLUOXETINE HYDROCHLORIDE
     Route: 065

REACTIONS (1)
  - Drug interaction [Fatal]
